FAERS Safety Report 18448893 (Version 1)
Quarter: 2020Q4

REPORT INFORMATION
  Report Type: Spontaneous
  Country: US (occurrence: US)
  Receive Date: 20201030
  Receipt Date: 20201030
  Transmission Date: 20210114
  Serious: Yes (Hospitalization, Other)
  Sender: FDA-Public Use
  Company Number: US-BRISTOL-MYERS SQUIBB COMPANY-BMS-2020-087948

PATIENT
  Sex: Female

DRUGS (1)
  1. OPDIVO [Suspect]
     Active Substance: NIVOLUMAB
     Indication: PRODUCT USED FOR UNKNOWN INDICATION
     Route: 065

REACTIONS (10)
  - Blister [Unknown]
  - Hypoacusis [Unknown]
  - Cognitive disorder [Unknown]
  - Speech disorder [Unknown]
  - Dizziness [Unknown]
  - Cardiac disorder [Unknown]
  - Diplopia [Unknown]
  - Metastatic malignant melanoma [Unknown]
  - Peripheral swelling [Unknown]
  - Productive cough [Unknown]
